FAERS Safety Report 22629099 (Version 1)
Quarter: 2023Q2

REPORT INFORMATION
  Report Type: Spontaneous
  Country: OM (occurrence: OM)
  Receive Date: 20230622
  Receipt Date: 20230622
  Transmission Date: 20230721
  Serious: Yes (Hospitalization, Other)
  Sender: FDA-Public Use
  Company Number: OM-ORCHIDPHARMA-2023ORC00006

PATIENT
  Age: 2 Month
  Weight: 2.8 kg

DRUGS (3)
  1. CEFDINIR [Suspect]
     Active Substance: CEFDINIR
     Indication: Otitis media
     Dosage: 7 MG/KG/DOSE TWICE PER DAY
  2. IRON [Suspect]
     Active Substance: IRON
     Indication: Supplementation therapy
  3. ACETAMINOPHEN [Concomitant]
     Active Substance: ACETAMINOPHEN
     Indication: Otitis media
     Dosage: 15 MG/KG/DOSE FOUR TIMES PER DAY

REACTIONS (2)
  - Haematochezia [Unknown]
  - Drug interaction [Unknown]
